FAERS Safety Report 8977513 (Version 1)
Quarter: 2012Q4

REPORT INFORMATION
  Report Type: 
  Country: US (occurrence: US)
  Receive Date: 20121220
  Receipt Date: 20121220
  Transmission Date: 20130627
  Serious: Yes (Other)
  Sender: FDA-Public Use
  Company Number: US-PFIZER INC-2012271187

PATIENT
  Age: 74 Year
  Sex: Female
  Weight: 48.98 kg

DRUGS (4)
  1. ALPRAZOLAM [Suspect]
     Indication: ANXIETY
     Dosage: 0.5 mg, 4x/day
     Route: 048
  2. ALPRAZOLAM [Suspect]
     Indication: PANIC ATTACKS
  3. ALPRAZOLAM [Suspect]
     Indication: ANXIETY
     Dosage: UNK
  4. ALPRAZOLAM [Suspect]
     Indication: PANIC ATTACKS

REACTIONS (4)
  - Breast disorder [Unknown]
  - Drug ineffective [Unknown]
  - Palpitations [Unknown]
  - Neuropathy peripheral [Unknown]
